FAERS Safety Report 8907019 (Version 2)
Quarter: 2016Q4

REPORT INFORMATION
  Report Type: Spontaneous
  Country: US (occurrence: US)
  Receive Date: 20121114
  Receipt Date: 20161025
  Transmission Date: 20170207
  Serious: Yes (Death, Other)
  Sender: FDA-Public Use
  Company Number: US-SANOFI-AVENTIS-2012SA082431

PATIENT
  Sex: Female

DRUGS (3)
  1. LANTUS [Suspect]
     Active Substance: INSULIN GLARGINE
     Dosage: VIAL.
     Route: 058
     Dates: start: 2000
  2. LANTUS SOLOSTAR [Suspect]
     Active Substance: INSULIN GLARGINE
     Route: 058
  3. SOLOSTAR [Concomitant]
     Active Substance: DEVICE

REACTIONS (5)
  - Hypoxia [Fatal]
  - Sepsis [Fatal]
  - Blindness [Unknown]
  - Renal transplant [Unknown]
  - Pancreas transplant [Unknown]

NARRATIVE: CASE EVENT DATE: 2006
